FAERS Safety Report 11191242 (Version 3)
Quarter: 2015Q3

REPORT INFORMATION
  Report Type: Spontaneous
  Country: US (occurrence: US)
  Receive Date: 20150615
  Receipt Date: 20150910
  Transmission Date: 20151125
  Serious: No
  Sender: FDA-Public Use
  Company Number: US-ASTRAZENECA-2015SE55046

PATIENT
  Sex: Female
  Weight: 122.9 kg

DRUGS (9)
  1. LANTUS [Concomitant]
     Active Substance: INSULIN GLARGINE
  2. VITAMINS [Concomitant]
     Active Substance: VITAMINS
  3. LOSARTAN. [Concomitant]
     Active Substance: LOSARTAN
  4. BYETTA [Suspect]
     Active Substance: EXENATIDE
     Indication: TYPE 2 DIABETES MELLITUS
     Dosage: 250 MCG / 2.4 ML PEN, ONCE A WEEK
     Route: 058
  5. FLUCONAZOLE. [Concomitant]
     Active Substance: FLUCONAZOLE
  6. SIMVASTATIN. [Concomitant]
     Active Substance: SIMVASTATIN
  7. ALLOPURINOL. [Concomitant]
     Active Substance: ALLOPURINOL
  8. BABY ASPIRIN [Concomitant]
     Active Substance: ASPIRIN
  9. METROPOL [Concomitant]
     Indication: HYPERTENSION

REACTIONS (3)
  - Blood glucose increased [Unknown]
  - Product quality issue [Unknown]
  - Drug dose omission [Unknown]
